FAERS Safety Report 7226409-9 (Version None)
Quarter: 2011Q1

REPORT INFORMATION
  Report Type: 
  Country: None (occurrence: None)
  Receive Date: 20110114
  Receipt Date: 20110107
  Transmission Date: 20110831
  Serious: Yes (Hospitalization, Other)
  Sender: FDA-Public Use
  Company Number: GB-RANBAXY-2011RR-40965

PATIENT
  Age: 34 Year
  Sex: Male

DRUGS (7)
  1. TEMAZEPAM [Suspect]
     Dosage: 120 MG, UNK
  2. CO-CODAMOL [Suspect]
  3. CITALOPRAM HYDROBROMIDE [Suspect]
     Dosage: 240 MG, UNK
  4. DOXAZOSIN [Suspect]
  5. AMLODIPINE [Suspect]
  6. DIAZEPAM [Suspect]
     Dosage: 140 MG, UNK
  7. PERINDOPRIL [Suspect]

REACTIONS (3)
  - MULTIPLE DRUG OVERDOSE [None]
  - METABOLIC ACIDOSIS [None]
  - TOXICITY TO VARIOUS AGENTS [None]
